FAERS Safety Report 4414027-7 (Version None)
Quarter: 2004Q3

REPORT INFORMATION
  Report Type: 
  Country: None (occurrence: None)
  Receive Date: 20040728
  Receipt Date: 20040726
  Transmission Date: 20050211
  Serious: Yes (Death, Hospitalization)
  Sender: FDA-Public Use
  Company Number: TCI2004A02383

PATIENT
  Age: 93 Year
  Sex: Male

DRUGS (11)
  1. TAKEPRON                 (LANSOPRAZOLE) (TABLETS) [Suspect]
     Indication: DUODENAL ULCER
     Dosage: 30 MG ( 30 MG, 1 IN 1 D) PER ORAL
     Route: 048
     Dates: start: 20040510, end: 20040603
  2. TAKEPRON                 (LANSOPRAZOLE) (TABLETS) [Suspect]
     Indication: GASTRIC ULCER
     Dosage: 30 MG ( 30 MG, 1 IN 1 D) PER ORAL
     Route: 048
     Dates: start: 20040510, end: 20040603
  3. NORVASC [Suspect]
     Indication: HYPERTENSION
     Dosage: 5 MG ( 5 MG, 1 D) PER ORAL
     Route: 048
     Dates: start: 20040515, end: 20040603
  4. BLOPRESS (CANDESARTAN CILEXETIL) [Concomitant]
  5. FERROMIA (FERROUS CITRATE) [Concomitant]
  6. ATELEC (CILNIDIPINE) [Concomitant]
  7. TIENAM (PRIMAXIN) [Concomitant]
  8. BULTAL (BLUTAL) [Concomitant]
  9. AMINOFLID (AMINOFLUID) [Concomitant]
     Route: 041
  10. ITRACONAZOLE [Concomitant]
  11. PIPERACILLIN SODIUM [Concomitant]

REACTIONS (14)
  - ASCITES [None]
  - ATELECTASIS [None]
  - CANDIDIASIS [None]
  - CARDIAC ARREST [None]
  - ENTEROCOCCAL INFECTION [None]
  - GASTRIC CANCER [None]
  - INTERSTITIAL LUNG DISEASE [None]
  - PLEURAL EFFUSION [None]
  - PSEUDOMONAS INFECTION [None]
  - PULMONARY MYCOSIS [None]
  - SEPTIC SHOCK [None]
  - SPUTUM CULTURE POSITIVE [None]
  - STAPHYLOCOCCAL INFECTION [None]
  - STENOTROPHOMONAS INFECTION [None]
